FAERS Safety Report 9629896 (Version 3)
Quarter: 2013Q4

REPORT INFORMATION
  Report Type: Report from Study
  Country: US (occurrence: US)
  Receive Date: 20131017
  Receipt Date: 20131216
  Transmission Date: 20140711
  Serious: Yes (Hospitalization)
  Sender: FDA-Public Use
  Company Number: US-VERTEX PHARMACEUTICALS INC-2013-010398

PATIENT
  Age: 10 Year
  Sex: Female
  Weight: 38 kg

DRUGS (12)
  1. VX-770 [Suspect]
     Indication: CYSTIC FIBROSIS
     Dosage: 150 MG, BID
     Route: 048
     Dates: start: 20130509, end: 20131022
  2. VITAMIN C [Concomitant]
     Indication: VITAMIN SUPPLEMENTATION
     Dosage: 500 MG, BID
     Dates: start: 201309, end: 20131008
  3. GARLIC [Concomitant]
     Indication: NUTRITIONAL SUPPLEMENTATION
     Dosage: 1 DF, QD
     Route: 048
     Dates: start: 201309, end: 20131008
  4. LECITHIN [Concomitant]
     Indication: NUTRITIONAL SUPPLEMENTATION
     Dosage: 1 DF, QD
     Route: 048
     Dates: start: 201309, end: 20131008
  5. FLAXSEED [Concomitant]
     Indication: NUTRITIONAL SUPPLEMENTATION
     Dosage: 1000 MG, QD
     Route: 048
     Dates: start: 201309, end: 20131008
  6. HYPERTONIC SALINE SOLUTION [Concomitant]
     Indication: CYSTIC FIBROSIS LUNG
     Dosage: 4 ML, TID
     Route: 055
     Dates: start: 2013, end: 20131022
  7. ALBUTEROL [Concomitant]
     Indication: CYSTIC FIBROSIS LUNG
     Dosage: 2 DF, BID
     Route: 055
     Dates: start: 2008, end: 20131008
  8. PULMOZYME [Concomitant]
     Indication: CYSTIC FIBROSIS LUNG
     Dosage: 2.5 ML, QD
     Route: 055
     Dates: start: 201308
  9. FLOVENT [Concomitant]
     Indication: CYSTIC FIBROSIS LUNG
     Dosage: 2 DF, BID
     Route: 055
     Dates: start: 2003
  10. MULTIVITAMIN [Concomitant]
     Indication: VITAMIN SUPPLEMENTATION
     Dosage: 1 DF, QD
     Route: 048
     Dates: start: 2003
  11. VITAMIN D3 [Concomitant]
     Indication: VITAMIN SUPPLEMENTATION
     Dosage: 1000 IU, QD
     Route: 048
  12. MIRALAX [Concomitant]
     Indication: CONSTIPATION
     Dosage: 0.5 DF, QD
     Route: 048
     Dates: end: 20131007

REACTIONS (1)
  - Infective pulmonary exacerbation of cystic fibrosis [Recovered/Resolved]
